FAERS Safety Report 6192016-2 (Version None)
Quarter: 2009Q2

REPORT INFORMATION
  Report Type: 
  Country: None (occurrence: None)
  Receive Date: 20090515
  Receipt Date: 20090508
  Transmission Date: 20091009
  Serious: Yes (Hospitalization)
  Sender: FDA-Public Use
  Company Number: B0574067A

PATIENT
  Age: 53 Year
  Sex: Male

DRUGS (4)
  1. ZYBAN [Suspect]
     Route: 048
     Dates: start: 20080801, end: 20081201
  2. ISONIAZID [Suspect]
     Indication: LATENT TUBERCULOSIS
     Dosage: 20MG PER DAY
     Route: 048
     Dates: start: 20080519, end: 20090314
  3. TREXAN [Concomitant]
     Indication: RHEUMATIC FEVER
     Dosage: 20MG PER DAY
     Route: 048
  4. ENBREL [Concomitant]
     Indication: RHEUMATIC FEVER
     Dosage: 50MG PER DAY
     Route: 058
     Dates: start: 20080301

REACTIONS (8)
  - ANXIETY [None]
  - CRYING [None]
  - DEPRESSED MOOD [None]
  - EMOTIONAL DISTRESS [None]
  - IMPATIENCE [None]
  - IRRITABILITY [None]
  - MOOD ALTERED [None]
  - SUICIDAL IDEATION [None]
